FAERS Safety Report 12088138 (Version 1)
Quarter: 2016Q1

REPORT INFORMATION
  Report Type: Spontaneous
  Country: US (occurrence: US)
  Receive Date: 20160218
  Receipt Date: 20160218
  Transmission Date: 20160526
  Serious: Yes (Other)
  Sender: FDA-Public Use
  Company Number: US-JNJCP-30000323148

PATIENT
  Sex: Female

DRUGS (1)
  1. NEUTROGENA HEALTHY SKIN FACE BROAD SPECTRUM SPF15 [Suspect]
     Active Substance: AVOBENZONE\OCTISALATE\OCTOCRYLENE\OXYBENZONE
     Indication: PRODUCT USED FOR UNKNOWN INDICATION
     Dosage: SEVEN TIMES A WEEK
     Route: 061

REACTIONS (2)
  - Ocular hyperaemia [Recovered/Resolved]
  - Application site swelling [Recovered/Resolved]
